FAERS Safety Report 4818848-8 (Version None)
Quarter: 2005Q4

REPORT INFORMATION
  Report Type: 
  Country: None (occurrence: None)
  Receive Date: 20051101
  Receipt Date: 20051013
  Transmission Date: 20060501
  Serious: Yes (Other)
  Sender: FDA-Public Use
  Company Number: MEDI-0003721

PATIENT
  Age: 42 Year
  Sex: Female
  Weight: 98.4306 kg

DRUGS (9)
  1. ETHYOL [Suspect]
     Indication: CHEMOTHERAPY
     Dosage: 500 MG, 5 IN 1 WK, SUBCUTANEOUS
     Route: 058
     Dates: start: 20050921, end: 20050930
  2. ETHYOL [Suspect]
     Indication: RADIOTHERAPY
     Dosage: 500 MG, 5 IN 1 WK, SUBCUTANEOUS
     Route: 058
     Dates: start: 20050921, end: 20050930
  3. FLUOROURACIL [Concomitant]
  4. RADIATION THERAPY [Concomitant]
  5. CELEBREX [Concomitant]
  6. AMBIEN [Concomitant]
  7. ZANAFLEX [Suspect]
  8. STOOL SOFTENER (DOCUSATE SODIUM) [Concomitant]
  9. CISPLATIN [Concomitant]

REACTIONS (10)
  - CHILLS [None]
  - FACE OEDEMA [None]
  - GENITAL PRURITUS FEMALE [None]
  - INJECTION SITE ERYTHEMA [None]
  - INJECTION SITE URTICARIA [None]
  - MALAISE [None]
  - RASH ERYTHEMATOUS [None]
  - RASH PAPULAR [None]
  - SKIN BURNING SENSATION [None]
  - SKIN LESION [None]
